FAERS Safety Report 25974652 (Version 2)
Quarter: 2025Q4

REPORT INFORMATION
  Report Type: Spontaneous
  Country: CA (occurrence: CA)
  Receive Date: 20251029
  Receipt Date: 20251113
  Transmission Date: 20260117
  Serious: Yes (Hospitalization, Other)
  Sender: PFIZER
  Company Number: CA-PFIZER INC-202500135118

PATIENT
  Age: 72 Year
  Sex: Female
  Weight: 84 kg

DRUGS (7)
  1. IXIFI [Suspect]
     Active Substance: INFLIXIMAB-QBTX
     Indication: Crohn^s disease
     Dosage: 400 MG, AT WEEK 0,2, 6 AND THEN EVERY 8 WEEKS
     Route: 042
     Dates: start: 20250616
  2. IXIFI [Suspect]
     Active Substance: INFLIXIMAB-QBTX
     Dosage: 400 MG, AFTER 2 WEEKS AND 2 DAYS
     Route: 042
     Dates: start: 20250702
  3. IXIFI [Suspect]
     Active Substance: INFLIXIMAB-QBTX
     Dosage: 400 MG, WEEK 6 (INDUCTION)
     Route: 042
     Dates: start: 20250806
  4. IXIFI [Suspect]
     Active Substance: INFLIXIMAB-QBTX
     Dosage: 400 MG, AFTER 8 WEEKS
     Route: 042
     Dates: start: 20251001
  5. PERINDOPRIL ERBUMINE [Concomitant]
     Active Substance: PERINDOPRIL ERBUMINE
     Indication: Blood pressure abnormal
     Dosage: UNK
  6. PREDNISONE [Concomitant]
     Active Substance: PREDNISONE
     Dosage: UNK
  7. PREDNISONE [Concomitant]
     Active Substance: PREDNISONE
     Dosage: 48 MG
     Dates: start: 20251015, end: 20251024

REACTIONS (7)
  - Pneumonitis [Unknown]
  - Pulmonary haemorrhage [Unknown]
  - Condition aggravated [Not Recovered/Not Resolved]
  - Intestinal obstruction [Unknown]
  - Blood pressure increased [Unknown]
  - Chest discomfort [Recovered/Resolved]
  - Inappropriate schedule of product administration [Unknown]

NARRATIVE: CASE EVENT DATE: 20250101
